FAERS Safety Report 26125385 (Version 1)
Quarter: 2025Q4

REPORT INFORMATION
  Report Type: Spontaneous
  Country: EU (occurrence: EU)
  Receive Date: 20251205
  Receipt Date: 20251205
  Transmission Date: 20260118
  Serious: Yes (Other)
  Sender: ROCHE
  Company Number: EU-ROCHE-10000445843

PATIENT
  Age: 63 Year
  Sex: Female

DRUGS (3)
  1. ADO-TRASTUZUMAB EMTANSINE [Suspect]
     Active Substance: ADO-TRASTUZUMAB EMTANSINE
     Indication: Breast cancer metastatic
     Route: 065
     Dates: start: 202004
  2. CAPECITABINE [Concomitant]
     Active Substance: CAPECITABINE
  3. LAPATINIB [Concomitant]
     Active Substance: LAPATINIB

REACTIONS (6)
  - Nodular regenerative hyperplasia [Unknown]
  - Portal hypertension [Unknown]
  - Thrombocytopenia [Not Recovered/Not Resolved]
  - Ascites [Unknown]
  - Transaminases increased [Unknown]
  - Splenomegaly [Unknown]
